FAERS Safety Report 13927659 (Version 2)
Quarter: 2017Q3

REPORT INFORMATION
  Report Type: Spontaneous
  Country: US (occurrence: US)
  Receive Date: 20170901
  Receipt Date: 20170918
  Transmission Date: 20171127
  Serious: No
  Sender: FDA-Public Use
  Company Number: US-PFIZER INC-2017374351

PATIENT
  Age: 79 Year
  Sex: Female

DRUGS (1)
  1. XELJANZ XR [Suspect]
     Active Substance: TOFACITINIB CITRATE
     Indication: RHEUMATOID ARTHRITIS
     Dosage: 11 MG, DAILY
     Route: 048
     Dates: start: 20170810, end: 20170827

REACTIONS (5)
  - Asthma [Not Recovered/Not Resolved]
  - Influenza like illness [Unknown]
  - Cough [Unknown]
  - Pain [Unknown]
  - Condition aggravated [Not Recovered/Not Resolved]
